FAERS Safety Report 20004170 (Version 1)
Quarter: 2021Q4

REPORT INFORMATION
  Report Type: Spontaneous
  Country: US (occurrence: US)
  Receive Date: 20211028
  Receipt Date: 20211028
  Transmission Date: 20220303
  Serious: Yes (Other)
  Sender: FDA-Public Use
  Company Number: US-SHILPA MEDICARE LIMITED-SML-US-2021-01247

PATIENT
  Age: 59 Year
  Sex: Female

DRUGS (2)
  1. IMATINIB [Suspect]
     Active Substance: IMATINIB
     Indication: Hypereosinophilic syndrome
     Route: 065
  2. HYDROXYUREA [Suspect]
     Active Substance: HYDROXYUREA
     Indication: Hypereosinophilic syndrome
     Route: 065

REACTIONS (6)
  - Disease progression [Unknown]
  - Myocardial infarction [Unknown]
  - Restrictive cardiomyopathy [Unknown]
  - Cardiogenic shock [Unknown]
  - Pulmonary oedema [Unknown]
  - Drug ineffective [Unknown]
